FAERS Safety Report 7824136-8 (Version None)
Quarter: 2011Q4

REPORT INFORMATION
  Report Type: 
  Country: None (occurrence: None)
  Receive Date: 20111014
  Receipt Date: 20111003
  Transmission Date: 20120403
  Serious: Yes (Other)
  Sender: FDA-Public Use
  Company Number: EU-2011-10185

PATIENT
  Sex: Male

DRUGS (7)
  1. CILOSTAZOL [Suspect]
     Dosage: 200 MG MILLIGRAM(S), DAILY DOSE, ORAL
     Route: 048
     Dates: start: 20110730, end: 20110802
  2. OLMESARTAN MEDOXOMIL [Concomitant]
  3. HYDROCHLOROTHIAZIDE [Concomitant]
  4. OMACOR [Concomitant]
  5. ATORVASTATIN CALCIUM [Concomitant]
  6. PLAVIX [Concomitant]
  7. INSULIN (INSULIN) [Concomitant]

REACTIONS (3)
  - DIZZINESS [None]
  - TACHYCARDIA [None]
  - HYPERHIDROSIS [None]
